FAERS Safety Report 8001893-1 (Version None)
Quarter: 2011Q4

REPORT INFORMATION
  Report Type: 
  Country: None (occurrence: None)
  Receive Date: 20111222
  Receipt Date: 20111220
  Transmission Date: 20120403
  Serious: No
  Sender: FDA-Public Use
  Company Number: US-B.I. PHARMACEUTICALS,INC./RIDGEFIELD-2011-BP-28554BP

PATIENT
  Sex: Female

DRUGS (1)
  1. TRADJENTA [Suspect]

REACTIONS (6)
  - BURNING SENSATION [None]
  - GLOSSODYNIA [None]
  - ORAL MUCOSAL ERYTHEMA [None]
  - ORAL DISCOMFORT [None]
  - TONGUE DISORDER [None]
  - CHEILITIS [None]
